FAERS Safety Report 4576406-7 (Version None)
Quarter: 2005Q1

REPORT INFORMATION
  Report Type: 
  Country: None (occurrence: None)
  Receive Date: 20050119
  Receipt Date: 20040323
  Transmission Date: 20050727
  Serious: Yes (Hospitalization)
  Sender: FDA-Public Use
  Company Number: A03200400906

PATIENT
  Age: 66 Year
  Sex: Male
  Weight: 65.7716 kg

DRUGS (9)
  1. PLAVIX [Suspect]
     Indication: ANTICOAGULANT THERAPY
     Dosage: 75 MG QD - ORAL
     Route: 048
     Dates: start: 20031007
  2. ANGIOMAX [Suspect]
     Indication: ANTICOAGULANT THERAPY
     Dosage: 180 MG ONCE - INTRAVENOUS NOS
     Route: 042
     Dates: start: 20031006, end: 20031006
  3. ANGIOMAX [Suspect]
     Indication: CORONARY ARTERY SURGERY
     Dosage: 180 MG ONCE - INTRAVENOUS NOS
     Route: 042
     Dates: start: 20031006, end: 20031006
  4. ASPIRIN [Suspect]
     Indication: ANTICOAGULANT THERAPY
     Dosage: 325 MG QD
     Dates: start: 20031007
  5. SPIRONOLACTONE [Concomitant]
  6. METOPROLOL TARTRATE [Concomitant]
  7. PANTOPRAZOLE SODIUM [Concomitant]
  8. GLYBURIDE AND METFORMIN HCL [Concomitant]
  9. PROPOXYPHENE NAPSYLATE AND ACETAMINOPHEN [Concomitant]

REACTIONS (2)
  - ANAEMIA [None]
  - GASTROINTESTINAL HAEMORRHAGE [None]
